FAERS Safety Report 7625501-4 (Version None)
Quarter: 2011Q3

REPORT INFORMATION
  Report Type: 
  Country: None (occurrence: None)
  Receive Date: 20110721
  Receipt Date: 20110714
  Transmission Date: 20111222
  Serious: Yes (Other)
  Sender: FDA-Public Use
  Company Number: US-BAYER-2011-062220

PATIENT
  Sex: Female

DRUGS (2)
  1. MIRENA [Suspect]
     Route: 015
  2. MIRENA [Suspect]
     Indication: CONTRACEPTION
     Dosage: UNK
     Route: 015
     Dates: start: 20110603, end: 20110623

REACTIONS (1)
  - DEVICE DISLOCATION [None]
